FAERS Safety Report 5154983-5 (Version None)
Quarter: 2006Q4

REPORT INFORMATION
  Report Type: 
  Country: None (occurrence: None)
  Receive Date: 20061120
  Receipt Date: 20061120
  Transmission Date: 20070319
  Serious: Yes (Hospitalization)
  Sender: FDA-Public Use
  Company Number: None

PATIENT
  Sex: Female
  Weight: 55.0667 kg

DRUGS (1)
  1. PRIMAXIN [Suspect]
     Dosage: 250MG   Q6H   IV
     Route: 042
     Dates: start: 20060808, end: 20060811

REACTIONS (1)
  - GRAND MAL CONVULSION [None]
